FAERS Safety Report 9236812 (Version 1)
Quarter: 2013Q2

REPORT INFORMATION
  Report Type: Spontaneous
  Country: US (occurrence: US)
  Receive Date: 20130417
  Receipt Date: 20130417
  Transmission Date: 20140414
  Serious: Yes (Other)
  Sender: FDA-Public Use
  Company Number: US-AMGEN-USASP2013025207

PATIENT
  Age: 58 Year
  Sex: Female
  Weight: 59 kg

DRUGS (9)
  1. PROCRIT [Suspect]
     Indication: PRODUCT USED FOR UNKNOWN INDICATION
     Dosage: UNK
  2. TELAPREVIR [Suspect]
     Indication: HEPATITIS C
     Dosage: 750 MG, TID
     Route: 048
  3. RIBAPAK [Suspect]
     Indication: HEPATITIS C
     Dosage: 400 MG, QD
  4. RIBAPAK [Suspect]
     Dosage: 800 MG, QD
  5. PEGASYS [Suspect]
     Indication: HEPATITIS C
     Dosage: UNK
     Route: 058
  6. BONIVA [Concomitant]
     Dosage: 150 MG, UNK
  7. AMBIEN [Concomitant]
     Dosage: 10 MG, UNK
  8. CALCIUM [Concomitant]
     Dosage: 500 UNK, UNK
  9. TAMOXIFEN [Concomitant]
     Dosage: 10 MG, UNK

REACTIONS (4)
  - Anaemia [Unknown]
  - Anxiety [Unknown]
  - Nervousness [Unknown]
  - Fatigue [Unknown]
